FAERS Safety Report 21596412 (Version 2)
Quarter: 2023Q2

REPORT INFORMATION
  Report Type: Report from Study
  Country: CO (occurrence: CO)
  Receive Date: 20221115
  Receipt Date: 20230615
  Transmission Date: 20230721
  Serious: Yes (Hospitalization)
  Sender: FDA-Public Use
  Company Number: CO-KYOWAKIRIN-2022BKK017684

PATIENT

DRUGS (9)
  1. CRYSVITA [Suspect]
     Active Substance: BUROSUMAB-TWZA
     Indication: Hereditary hypophosphataemic rickets
     Dosage: 60 MG, 1X/MONTH
     Route: 058
     Dates: start: 20211217, end: 20211230
  2. CRYSVITA [Suspect]
     Active Substance: BUROSUMAB-TWZA
     Dosage: 60 MG, 1X/MONTH
     Route: 058
     Dates: start: 20220117, end: 20220117
  3. CRYSVITA [Suspect]
     Active Substance: BUROSUMAB-TWZA
     Dosage: 60 MG, 1X/MONTH
     Route: 058
     Dates: start: 20220212, end: 20220909
  4. CRYSVITA [Suspect]
     Active Substance: BUROSUMAB-TWZA
     Dosage: 60 MG, 1X/MONTH
     Route: 058
     Dates: start: 20220418, end: 20220616
  5. CRYSVITA [Suspect]
     Active Substance: BUROSUMAB-TWZA
     Dosage: 60 MG, 1X/MONTH
     Route: 058
     Dates: start: 20220804, end: 20220901
  6. CRYSVITA [Suspect]
     Active Substance: BUROSUMAB-TWZA
     Dosage: 60 MG, 1X/MONTH
     Route: 058
     Dates: start: 20221003, end: 20221031
  7. CRYSVITA [Suspect]
     Active Substance: BUROSUMAB-TWZA
     Dosage: 60 MG, 1X/MONTH
     Route: 058
     Dates: start: 20221209, end: 20221209
  8. CRYSVITA [Suspect]
     Active Substance: BUROSUMAB-TWZA
     Dosage: 60 MG, 1X/MONTH
     Route: 058
     Dates: start: 20230216, end: 20230420
  9. CRYSVITA [Suspect]
     Active Substance: BUROSUMAB-TWZA
     Dosage: 60 MG, 1X/MONTH
     Route: 058
     Dates: start: 20230523

REACTIONS (4)
  - Limb deformity [Recovering/Resolving]
  - Osteotomy [Recovering/Resolving]
  - Intramedullary rod insertion [Recovering/Resolving]
  - Osteotomy [Recovering/Resolving]

NARRATIVE: CASE EVENT DATE: 20221104
